FAERS Safety Report 5108803-5 (Version None)
Quarter: 2006Q3

REPORT INFORMATION
  Report Type: 
  Country: None (occurrence: None)
  Receive Date: 20060918
  Receipt Date: 20060831
  Transmission Date: 20061208
  Serious: No
  Sender: FDA-Public Use
  Company Number: US200609001151

PATIENT
  Age: 40 Year
  Sex: Male

DRUGS (3)
  1. CYMBALTA [Suspect]
     Dosage: 60 MG
     Dates: start: 20060401, end: 20060801
  2. PREGABALIN [Concomitant]
  3. FLEXERIL [Concomitant]

REACTIONS (1)
  - LIVER FUNCTION TEST ABNORMAL [None]
